FAERS Safety Report 11745840 (Version 1)
Quarter: 2015Q4

REPORT INFORMATION
  Report Type: Spontaneous
  Country: None (occurrence: None)
  Receive Date: 20151116
  Receipt Date: 20151116
  Transmission Date: 20160304
  Serious: Yes (Disabling)
  Sender: FDA-Public Use
  Company Number: None

PATIENT
  Sex: Female

DRUGS (1)
  1. CIPROFLOXACIN 250 MG [Suspect]
     Active Substance: CIPROFLOXACIN
     Indication: URINARY TRACT INFECTION
     Dosage: 1 PILL, TWICE DAILY, TAKEN BY MOUTH
     Route: 048
     Dates: start: 20151103, end: 20151103

REACTIONS (9)
  - Palpitations [None]
  - Pain in extremity [None]
  - Asthenia [None]
  - Back pain [None]
  - Neck pain [None]
  - Neuropathy peripheral [None]
  - Bone disorder [None]
  - Tinnitus [None]
  - Anxiety [None]

NARRATIVE: CASE EVENT DATE: 20151103
